FAERS Safety Report 10728794 (Version 1)
Quarter: 2015Q1

REPORT INFORMATION
  Report Type: Spontaneous
  Country: US (occurrence: None)
  Receive Date: 20150120
  Receipt Date: 20150120
  Transmission Date: 20150721
  Serious: Yes (Other)
  Sender: FDA-Public Use
  Company Number: None

PATIENT
  Age: 73 Year
  Sex: Male
  Weight: 74.84 kg

DRUGS (2)
  1. ALPROLIX [Suspect]
     Active Substance: EFTRENONACOG ALFA
     Indication: FACTOR IX DEFICIENCY
     Dosage: INTO A VEIN
     Route: 042
     Dates: start: 20150111, end: 20150115
  2. ALPROLIX [Suspect]
     Active Substance: EFTRENONACOG ALFA
     Indication: HAEMOPHILIA
     Dosage: INTO A VEIN
     Route: 042
     Dates: start: 20150111, end: 20150115

REACTIONS (3)
  - Drug ineffective [None]
  - Product substitution issue [None]
  - Haemorrhage [None]

NARRATIVE: CASE EVENT DATE: 20150111
